FAERS Safety Report 4357209-5 (Version None)
Quarter: 2004Q2

REPORT INFORMATION
  Report Type: 
  Country: None (occurrence: None)
  Receive Date: 20040512
  Receipt Date: 20040512
  Transmission Date: 20050107
  Serious: Yes (Other)
  Sender: FDA-Public Use
  Company Number: None

PATIENT
  Age: 64 Year
  Sex: Male

DRUGS (3)
  1. RIMACTANE [Suspect]
  2. PRISTINAMYCIN [Concomitant]
  3. FUSIDIC ACID [Concomitant]

REACTIONS (2)
  - ASPIRATION BONE MARROW ABNORMAL [None]
  - SIDEROBLASTIC ANAEMIA [None]
